FAERS Safety Report 23538793 (Version 1)
Quarter: 2024Q1

REPORT INFORMATION
  Report Type: Spontaneous
  Country: AU (occurrence: AU)
  Receive Date: 20240219
  Receipt Date: 20240219
  Transmission Date: 20240409
  Serious: Yes (Hospitalization, Disabling, Congenital Anomaly, Other)
  Sender: FDA-Public Use
  Company Number: AU-SANOFI-AVENTIS-2013SA061932

PATIENT
  Sex: Male

DRUGS (20)
  1. ACETAMINOPHEN [Suspect]
     Active Substance: ACETAMINOPHEN
     Indication: Maternal exposure during pregnancy
     Dosage: UNK UNK,UNK
     Route: 064
  2. RANITIDINE HYDROCHLORIDE [Suspect]
     Active Substance: RANITIDINE HYDROCHLORIDE
     Indication: Maternal exposure during pregnancy
     Dosage: UNK UNK,UNK
     Route: 064
  3. RANITIDINE HYDROCHLORIDE [Suspect]
     Active Substance: RANITIDINE HYDROCHLORIDE
     Indication: Haemorrhage prophylaxis
  4. CEFTRIAXONE [Suspect]
     Active Substance: CEFTRIAXONE\CEFTRIAXONE SODIUM
     Indication: Maternal exposure during pregnancy
     Dosage: UNK UNK,UNK
     Route: 064
  5. CEFTRIAXONE [Suspect]
     Active Substance: CEFTRIAXONE\CEFTRIAXONE SODIUM
     Indication: Urinary tract infection
  6. CEPHALEXIN [Suspect]
     Active Substance: CEPHALEXIN
     Indication: Maternal exposure during pregnancy
     Dosage: UNK UNK,UNK
     Route: 064
  7. CEPHALEXIN [Suspect]
     Active Substance: CEPHALEXIN
     Indication: Urinary tract infection
  8. HEPARIN SODIUM [Suspect]
     Active Substance: HEPARIN SODIUM
     Indication: Maternal exposure during pregnancy
     Dosage: 5000 IU, TID
     Route: 064
  9. AMPICILLIN [Suspect]
     Active Substance: AMPICILLIN
     Indication: Maternal exposure during pregnancy
     Dosage: UNK UNK,UNK
     Route: 064
  10. AMPICILLIN [Suspect]
     Active Substance: AMPICILLIN
     Indication: Urinary tract infection
  11. FLUCONAZOLE [Suspect]
     Active Substance: FLUCONAZOLE
     Indication: Maternal exposure during pregnancy
     Dosage: UNK UNK,UNK
     Route: 064
  12. FLUCONAZOLE [Suspect]
     Active Substance: FLUCONAZOLE
     Indication: Vulvovaginal candidiasis
  13. MEROPENEM [Suspect]
     Active Substance: MEROPENEM
     Indication: Maternal exposure during pregnancy
     Dosage: UNK UNK,UNK
     Route: 064
  14. MEROPENEM [Suspect]
     Active Substance: MEROPENEM
     Indication: Urinary tract infection
  15. GENTAMICIN SULFATE [Suspect]
     Active Substance: GENTAMICIN SULFATE
     Indication: Maternal exposure during pregnancy
     Dosage: UNK UNK,UNK
     Route: 064
  16. GENTAMICIN SULFATE [Suspect]
     Active Substance: GENTAMICIN SULFATE
     Indication: Urinary tract infection
  17. AMOXICILLIN [Suspect]
     Active Substance: AMOXICILLIN
     Indication: Maternal exposure during pregnancy
     Dosage: UNK UNK,UNK
     Route: 064
  18. AMOXICILLIN [Suspect]
     Active Substance: AMOXICILLIN
     Indication: Urinary tract infection
  19. ENOXAPARIN SODIUM [Suspect]
     Active Substance: ENOXAPARIN SODIUM
     Indication: Maternal exposure during pregnancy
     Dosage: 40 MG, BID
     Route: 064
     Dates: start: 2005
  20. ENOXAPARIN SODIUM [Suspect]
     Active Substance: ENOXAPARIN SODIUM
     Indication: Thrombosis prophylaxis

REACTIONS (10)
  - Diplegia [Unknown]
  - Joint dislocation [Unknown]
  - Joint contracture [Unknown]
  - Cerebral palsy [Unknown]
  - Talipes [Unknown]
  - Congenital multiplex arthrogryposis [Unknown]
  - Hypotonia [Unknown]
  - Conductive deafness [Unknown]
  - Foetal exposure during pregnancy [Unknown]
  - Otitis media [Unknown]
